FAERS Safety Report 20945224 (Version 1)
Quarter: 2022Q2

REPORT INFORMATION
  Report Type: Report from Study
  Country: DE (occurrence: DE)
  Receive Date: 20220610
  Receipt Date: 20220610
  Transmission Date: 20220721
  Serious: Yes (Hospitalization)
  Sender: FDA-Public Use
  Company Number: DE-MYLANLABS-2022M1044096

PATIENT
  Age: 12 Year
  Sex: Male

DRUGS (1)
  1. METHYLPHENIDATE [Suspect]
     Active Substance: METHYLPHENIDATE
     Indication: Attention deficit hyperactivity disorder
     Dosage: 36 MILLIGRAM, QD (FORMULATION: PROLONGED-RELEASE TABLET)

REACTIONS (4)
  - Hallucination [Recovered/Resolved]
  - Suicidal ideation [Recovered/Resolved]
  - Drug dose titration not performed [Recovered/Resolved]
  - Incorrect dose administered [Recovered/Resolved]
